FAERS Safety Report 9824064 (Version 3)
Quarter: 2015Q3

REPORT INFORMATION
  Report Type: Spontaneous
  Country: US (occurrence: US)
  Receive Date: 20140116
  Receipt Date: 20150810
  Transmission Date: 20151125
  Serious: Yes (Hospitalization)
  Sender: FDA-Public Use
  Company Number: US-GILEAD-2011-0040246

PATIENT
  Age: 53 Year
  Sex: Female
  Weight: 78.9 kg

DRUGS (17)
  1. ENALAPRIL [Concomitant]
     Active Substance: ENALAPRIL
  2. METOLAZONE. [Concomitant]
     Active Substance: METOLAZONE
  3. ACTONEL [Concomitant]
     Active Substance: RISEDRONATE SODIUM
  4. LEVOTHYROXINE. [Concomitant]
     Active Substance: LEVOTHYROXINE
  5. MAGNESIUM OXIDE. [Concomitant]
     Active Substance: MAGNESIUM OXIDE
  6. LETAIRIS [Suspect]
     Active Substance: AMBRISENTAN
     Indication: PULMONARY HYPERTENSION
     Route: 048
     Dates: start: 20080312, end: 201107
  7. LETAIRIS [Suspect]
     Active Substance: AMBRISENTAN
     Indication: PULMONARY EMBOLISM
  8. AMITRIPTYLINE [Concomitant]
     Active Substance: AMITRIPTYLINE
  9. WARFARIN [Concomitant]
     Active Substance: WARFARIN
  10. AZITHROMYCIN [Concomitant]
     Active Substance: AZITHROMYCIN ANHYDROUS
  11. FUROSEMIDE. [Concomitant]
     Active Substance: FUROSEMIDE
  12. HYDROXYUREA. [Concomitant]
     Active Substance: HYDROXYUREA
  13. VITAMIN C [Concomitant]
     Active Substance: ASCORBIC ACID
  14. CHOLECALCIFEROL [Concomitant]
     Active Substance: CHOLECALCIFEROL
  15. TRAMADOL. [Concomitant]
     Active Substance: TRAMADOL
  16. FOLIC ACID. [Concomitant]
     Active Substance: FOLIC ACID
  17. MULTIVITAMIN [Concomitant]
     Active Substance: VITAMINS

REACTIONS (1)
  - Oedema peripheral [Not Recovered/Not Resolved]

NARRATIVE: CASE EVENT DATE: 20110603
